FAERS Safety Report 9188075 (Version 1)
Quarter: 2013Q1

REPORT INFORMATION
  Report Type: Spontaneous
  Country: US (occurrence: US)
  Receive Date: 20130325
  Receipt Date: 20130325
  Transmission Date: 20140127
  Serious: No
  Sender: FDA-Public Use
  Company Number: US-MYLANLABS-2013S1002067

PATIENT
  Age: 57 Year
  Sex: Female

DRUGS (1)
  1. FENTANYL TRANSDERMAL SYSTEM [Suspect]
     Indication: COMPLICATIONS OF TRANSPLANT SURGERY
     Dosage: Q 72H
     Route: 062

REACTIONS (3)
  - Drug ineffective [Recovered/Resolved]
  - Complications of transplant surgery [Recovered/Resolved]
  - Drug screen negative [Not Recovered/Not Resolved]
